FAERS Safety Report 15473399 (Version 1)
Quarter: 2018Q4

REPORT INFORMATION
  Report Type: Spontaneous
  Country: ES (occurrence: ES)
  Receive Date: 20181008
  Receipt Date: 20181008
  Transmission Date: 20190205
  Serious: Yes (Hospitalization)
  Sender: FDA-Public Use
  Company Number: ES-PFIZER INC-2018400322

PATIENT
  Age: 35 Year
  Sex: Female

DRUGS (4)
  1. VORICONAZOLE. [Suspect]
     Active Substance: VORICONAZOLE
     Dosage: 300 MG, 2X/DAY (EVERY 12 HOURS)
     Route: 048
     Dates: start: 20171031, end: 20171108
  2. TRUVADA [Concomitant]
     Active Substance: EMTRICITABINE\TENOFOVIR DISOPROXIL FUMARATE
     Dosage: 1 DF, 1X/DAY (ONE TABLET AFTER DINNER)
     Route: 048
     Dates: start: 20170330
  3. NORVIR [Concomitant]
     Active Substance: RITONAVIR
     Dosage: 1 DF, 1X/DAY (ONE CAPSULE AFTER DINNER)
     Route: 048
     Dates: start: 20170330
  4. REYATAZ [Concomitant]
     Active Substance: ATAZANAVIR SULFATE
     Dosage: 1 DF, 1X/DAY (ONE CAPSULE AFTER DINNER)
     Route: 048
     Dates: start: 20170330

REACTIONS (1)
  - Mixed liver injury [Recovered/Resolved]

NARRATIVE: CASE EVENT DATE: 20171108
